FAERS Safety Report 18202278 (Version 1)
Quarter: 2020Q3

REPORT INFORMATION
  Report Type: Spontaneous
  Country: US (occurrence: US)
  Receive Date: 20200827
  Receipt Date: 20200827
  Transmission Date: 20201103
  Serious: No
  Sender: FDA-Public Use
  Company Number: None

PATIENT
  Age: 59 Year
  Sex: Male
  Weight: 69 kg

DRUGS (2)
  1. MEROPENEM. [Concomitant]
     Active Substance: MEROPENEM
     Dates: start: 20200712, end: 20200826
  2. VANCOMYCIN HYDROCHOLORIDE [Suspect]
     Active Substance: VANCOMYCIN HYDROCHLORIDE
     Indication: BRAIN ABSCESS
     Route: 042
     Dates: start: 20200712, end: 20200817

REACTIONS (3)
  - Therapy interrupted [None]
  - Neutropenia [None]
  - White blood cell count decreased [None]

NARRATIVE: CASE EVENT DATE: 20200817
